FAERS Safety Report 23681674 (Version 1)
Quarter: 2024Q1

REPORT INFORMATION
  Report Type: Report from Study
  Country: FR (occurrence: FR)
  Receive Date: 20240328
  Receipt Date: 20240328
  Transmission Date: 20240410
  Serious: Yes (Other)
  Sender: FDA-Public Use
  Company Number: FR-Merck Healthcare KGaA-2024014953

PATIENT
  Sex: Female

DRUGS (1)
  1. LEVOTHYROXINE [Suspect]
     Active Substance: LEVOTHYROXINE\LEVOTHYROXINE SODIUM
     Indication: Post procedural hypothyroidism

REACTIONS (8)
  - Colitis ulcerative [Unknown]
  - Exophthalmos [Not Recovered/Not Resolved]
  - Fatigue [Unknown]
  - Somatic symptom disorder [Unknown]
  - Blood thyroid stimulating hormone decreased [Recovering/Resolving]
  - Weight decreased [Unknown]
  - Insomnia [Unknown]
  - Night sweats [Unknown]
